FAERS Safety Report 10867843 (Version 5)
Quarter: 2015Q2

REPORT INFORMATION
  Report Type: Report from Study
  Country: FR (occurrence: FR)
  Receive Date: 20150225
  Receipt Date: 20150608
  Transmission Date: 20150821
  Serious: Yes (Death, Hospitalization)
  Sender: FDA-Public Use
  Company Number: FR-CELGENE-FRA-2014125042

PATIENT
  Age: 68 Year
  Sex: Female
  Weight: 62 kg

DRUGS (10)
  1. AZACITIDINE INJECTABLE [Suspect]
     Active Substance: AZACITIDINE
     Route: 058
     Dates: start: 20150105, end: 20150113
  2. KARDEGIC [Concomitant]
     Active Substance: ASPIRIN LYSINE
     Indication: PROPHYLAXIS
     Dosage: 1
     Route: 048
  3. AZACITIDINE INJECTABLE [Suspect]
     Active Substance: AZACITIDINE
     Indication: REFRACTORY ANAEMIA WITH AN EXCESS OF BLASTS
     Route: 058
     Dates: start: 20141117, end: 20141125
  4. BISOPROLOL [Concomitant]
     Active Substance: BISOPROLOL
     Indication: CARDIOVASCULAR EVENT PROPHYLAXIS
     Dosage: 5
     Route: 048
  5. GLYCERYL TRINITRATE [Concomitant]
     Active Substance: NITROGLYCERIN
     Indication: TOBACCO WITHDRAWAL SYMPTOMS
     Dosage: 75
     Route: 048
  6. ZYLORIC [Concomitant]
     Active Substance: ALLOPURINOL
     Indication: NEPHROLITHIASIS
     Dosage: 80
     Route: 048
  7. ZAVEDOS [Suspect]
     Active Substance: IDARUBICIN
     Indication: REFRACTORY ANAEMIA WITH AN EXCESS OF BLASTS
     Route: 041
     Dates: start: 20141125, end: 20141125
  8. ZAVEDOS [Suspect]
     Active Substance: IDARUBICIN
     Route: 041
     Dates: start: 20150113, end: 20150113
  9. TAREG [Concomitant]
     Active Substance: VALSARTAN
     Indication: DEPRESSION
     Route: 048
  10. AMAREL [Concomitant]
     Active Substance: GLIMEPIRIDE
     Indication: DIABETES MELLITUS
     Dosage: 200
     Route: 048

REACTIONS (4)
  - Hyperthermia [Fatal]
  - Diarrhoea [Fatal]
  - Tooth avulsion [Recovered/Resolved]
  - Pancytopenia [Recovering/Resolving]

NARRATIVE: CASE EVENT DATE: 20141216
